FAERS Safety Report 10432615 (Version 1)
Quarter: 2014Q3

REPORT INFORMATION
  Report Type: Spontaneous
  Country: US (occurrence: None)
  Receive Date: 20140904
  Receipt Date: 20140904
  Transmission Date: 20150326
  Serious: Yes (Other)
  Sender: FDA-Public Use
  Company Number: None

PATIENT
  Sex: Female
  Weight: 68.95 kg

DRUGS (1)
  1. LAMOTRIGINE EXTENDED RELEASE [Suspect]
     Active Substance: LAMOTRIGINE
     Indication: CONVULSION
     Dosage: 200 MG ?T-TT QD?ORAL
     Route: 048
     Dates: start: 200904, end: 201107

REACTIONS (4)
  - Dysarthria [None]
  - Anxiety [None]
  - Convulsion [None]
  - Mood swings [None]
